FAERS Safety Report 8246710-X (Version None)
Quarter: 2012Q1

REPORT INFORMATION
  Report Type: 
  Country: None (occurrence: None)
  Receive Date: 20120330
  Receipt Date: 20120327
  Transmission Date: 20120608
  Serious: Yes (Death, Life-Threatening, Hospitalization, Other)
  Sender: FDA-Public Use
  Company Number: MX-SANOFI-AVENTIS-2012SA021373

PATIENT
  Age: 50 Year
  Sex: Female
  Weight: 65.5 kg

DRUGS (12)
  1. TAXOTERE [Suspect]
     Route: 042
     Dates: start: 20120118, end: 20120118
  2. TAXOTERE [Suspect]
     Route: 042
     Dates: start: 20120209, end: 20120209
  3. TAXOTERE [Suspect]
     Route: 042
     Dates: start: 20120118, end: 20120118
  4. TAXOTERE [Suspect]
     Route: 042
     Dates: start: 20120209, end: 20120209
  5. CYCLOPHOSPHAMIDE [Suspect]
     Dosage: 3 CYCLES.
     Route: 042
  6. TAXOTERE [Suspect]
     Route: 042
     Dates: start: 20120118, end: 20120118
  7. TAXOTERE [Suspect]
     Route: 042
     Dates: start: 20120309, end: 20120309
  8. FLUOROURACIL [Suspect]
     Dosage: 3 CYCLES.
     Route: 042
  9. TAXOTERE [Suspect]
     Route: 042
     Dates: start: 20120209, end: 20120209
  10. TAXOTERE [Suspect]
     Route: 042
     Dates: start: 20120309, end: 20120309
  11. TAXOTERE [Suspect]
     Route: 042
     Dates: start: 20120309, end: 20120309
  12. EPIRUBICIN [Suspect]
     Dosage: 3 CYCLES.
     Route: 042

REACTIONS (1)
  - INTERSTITIAL LUNG DISEASE [None]
